FAERS Safety Report 5618701-6 (Version None)
Quarter: 2008Q1

REPORT INFORMATION
  Report Type: 
  Country: None (occurrence: None)
  Receive Date: 20080207
  Receipt Date: 20080201
  Transmission Date: 20080703
  Serious: Yes (Hospitalization)
  Sender: FDA-Public Use
  Company Number: JP-ASTRAZENECA-2007AP07886

PATIENT
  Age: 22 Year
  Sex: Male

DRUGS (11)
  1. DIPRIVAN [Suspect]
     Indication: GENERAL ANAESTHESIA
     Dosage: 1%
     Route: 042
     Dates: start: 20071203, end: 20071203
  2. DORMICUM [Concomitant]
     Dosage: UNKNOWN DOSE
     Route: 065
     Dates: start: 20071203, end: 20071203
  3. ULTIVA [Concomitant]
     Dates: start: 20071001
  4. ULTIVA [Concomitant]
     Dosage: UNKNOWN DOSE
     Route: 042
     Dates: start: 20071203, end: 20071203
  5. UNKNOWNDRUG [Concomitant]
     Dosage: UNKNOWN DOSE
     Route: 065
     Dates: start: 20071203, end: 20071203
  6. DEXART [Concomitant]
     Dosage: UNKNOWN DOSE
     Route: 065
     Dates: start: 20071203, end: 20071203
  7. ROPION [Concomitant]
     Dates: start: 20071001
  8. ROPION [Concomitant]
     Dosage: UNKNOWN DOSE
     Route: 042
     Dates: start: 20071203, end: 20071203
  9. ATROPINE [Concomitant]
     Dosage: UNKNOWN DOSE
     Route: 065
     Dates: start: 20071203, end: 20071203
  10. UNKNOWNDRUG [Concomitant]
     Dosage: UNKNOWN DOSE
     Route: 065
     Dates: start: 20071203, end: 20071203
  11. DORMICARM [Concomitant]
     Dates: start: 20071001

REACTIONS (1)
  - RHABDOMYOLYSIS [None]
